FAERS Safety Report 10404458 (Version 1)
Quarter: 2014Q2

REPORT INFORMATION
  Report Type: Spontaneous
  Country: US (occurrence: None)
  Receive Date: 20140428
  Receipt Date: 20140428
  Transmission Date: 20141212
  Serious: No
  Sender: FDA-Public Use
  Company Number: PHEH2013US022713

PATIENT
  Age: 49 Year
  Sex: Female

DRUGS (7)
  1. GILENYA (FINGOLIMOD) [Suspect]
     Indication: MULTIPLE SCLEROSIS
     Route: 048
     Dates: start: 20111020
  2. MULTI-VIT (VITAMINS NOS) [Concomitant]
  3. GABAPENTIN (GABAPENTIN) [Concomitant]
  4. AMPYRA (FAMPRIDINE) [Concomitant]
  5. BUPROPION (BUPROPION) [Concomitant]
  6. PROVIGIL/MODAFINIL (MODAFINIL) [Concomitant]
  7. MIDRIN (DICHLORALPHENAZONE, ISOMETHEPTENE, PARACETAMOL) [Concomitant]

REACTIONS (1)
  - Alopecia [None]
